FAERS Safety Report 6287876-0 (Version None)
Quarter: 2009Q3

REPORT INFORMATION
  Report Type: 
  Country: None (occurrence: None)
  Receive Date: 20090729
  Receipt Date: 20090722
  Transmission Date: 20100115
  Serious: Yes (Other)
  Sender: FDA-Public Use
  Company Number: US-ELI_LILLY_AND_COMPANY-US200907004864

PATIENT
  Sex: Female

DRUGS (5)
  1. HUMULIN R [Suspect]
     Dosage: UNK, UNK
  2. PLAVIX [Concomitant]
  3. LIPITOR [Concomitant]
  4. NEURONTIN [Concomitant]
  5. BENICAR [Concomitant]

REACTIONS (9)
  - ANXIETY [None]
  - BLINDNESS UNILATERAL [None]
  - BLOOD GLUCOSE INCREASED [None]
  - BLOOD PRESSURE ABNORMAL [None]
  - CATARACT [None]
  - DRUG INEFFECTIVE [None]
  - EYE DISORDER [None]
  - EYE HAEMORRHAGE [None]
  - EYE LASER SURGERY [None]
